FAERS Safety Report 7419834-4 (Version None)
Quarter: 2011Q2

REPORT INFORMATION
  Report Type: 
  Country: None (occurrence: None)
  Receive Date: 20110418
  Receipt Date: 20110405
  Transmission Date: 20111010
  Serious: Yes (Other)
  Sender: FDA-Public Use
  Company Number: JP-JNJFOC-20110308437

PATIENT
  Sex: Female

DRUGS (8)
  1. LEVOFLOXACIN [Suspect]
     Route: 048
  2. TRANSAMIN [Suspect]
     Indication: ACUTE TONSILLITIS
     Route: 048
  3. MUCOSTA [Suspect]
     Indication: NAUSEA
     Route: 048
  4. MUCOSTA [Suspect]
     Route: 048
  5. MUCOSTA [Suspect]
     Indication: ACUTE TONSILLITIS
     Route: 048
  6. MUCOSTA [Suspect]
     Route: 048
  7. LEVOFLOXACIN [Suspect]
     Indication: ACUTE TONSILLITIS
     Route: 048
  8. TRANSAMIN [Suspect]
     Route: 048

REACTIONS (14)
  - WHEEZING [None]
  - SWELLING [None]
  - FEELING COLD [None]
  - URTICARIA [None]
  - CYANOSIS [None]
  - HYPOTENSION [None]
  - INTENTIONAL DRUG MISUSE [None]
  - PHARYNGEAL OEDEMA [None]
  - PAIN [None]
  - DYSPNOEA [None]
  - ERYTHEMA [None]
  - FALL [None]
  - PALLOR [None]
  - SWELLING FACE [None]
